FAERS Safety Report 16449417 (Version 1)
Quarter: 2019Q2

REPORT INFORMATION
  Report Type: Spontaneous
  Country: US (occurrence: US)
  Receive Date: 20190619
  Receipt Date: 20190619
  Transmission Date: 20190711
  Serious: Yes (Hospitalization)
  Sender: FDA-Public Use
  Company Number: US-UNICHEM PHARMACEUTICALS (USA) INC-UCM201906-000211

PATIENT
  Age: 51 Year
  Sex: Male

DRUGS (2)
  1. SILDENAFIL. [Suspect]
     Active Substance: SILDENAFIL
     Indication: PRODUCT USED FOR UNKNOWN INDICATION
  2. TADALAFIL. [Suspect]
     Active Substance: TADALAFIL
     Indication: PRODUCT USED FOR UNKNOWN INDICATION

REACTIONS (5)
  - Penile necrosis [Not Recovered/Not Resolved]
  - Fibrosis [Not Recovered/Not Resolved]
  - Delirium tremens [Recovered/Resolved]
  - Priapism [Not Recovered/Not Resolved]
  - Pyrexia [Recovered/Resolved]
